FAERS Safety Report 20104225 (Version 1)
Quarter: 2021Q4

REPORT INFORMATION
  Report Type: Spontaneous
  Country: US (occurrence: US)
  Receive Date: 20211123
  Receipt Date: 20211123
  Transmission Date: 20220303
  Serious: No
  Sender: FDA-Public Use
  Company Number: US-AMNEAL PHARMACEUTICALS-2021-AMRX-03991

PATIENT
  Sex: Female

DRUGS (2)
  1. ISOTRETINOIN [Suspect]
     Active Substance: ISOTRETINOIN
     Indication: Product used for unknown indication
     Dosage: 40 MILLIGRAM, DAILY
     Route: 065
     Dates: start: 20210322, end: 202104
  2. ISOTRETINOIN [Suspect]
     Active Substance: ISOTRETINOIN
     Dosage: 120 MILLIGRAM, DAILY
     Route: 065
     Dates: start: 202104, end: 202106

REACTIONS (2)
  - Migraine [Unknown]
  - Dry skin [Unknown]

NARRATIVE: CASE EVENT DATE: 20210101
